FAERS Safety Report 5015778-6 (Version None)
Quarter: 2006Q2

REPORT INFORMATION
  Report Type: 
  Country: None (occurrence: None)
  Receive Date: 20060525
  Receipt Date: 20060516
  Transmission Date: 20061013
  Serious: Yes (Hospitalization, Other)
  Sender: FDA-Public Use
  Company Number: 2005-11-1675

PATIENT
  Age: 68 Year
  Sex: Female

DRUGS (7)
  1. INTRON A [Suspect]
     Indication: CARCINOID SYNDROME
     Dosage: 1.5-2.5 MIU* SUBCUTANEOUS
     Route: 058
     Dates: start: 20050101, end: 20050101
  2. INTRON A [Suspect]
     Indication: CARCINOID SYNDROME
     Dosage: 1.5-2.5 MIU* SUBCUTANEOUS
     Route: 058
     Dates: start: 20050103, end: 20050228
  3. INTRON A [Suspect]
     Indication: CARCINOID SYNDROME
     Dosage: 1.5-2.5 MIU* SUBCUTANEOUS
     Route: 058
     Dates: start: 20050103, end: 20050906
  4. INTRON A [Suspect]
     Indication: CARCINOID SYNDROME
     Dosage: 1.5-2.5 MIU* SUBCUTANEOUS
     Route: 058
     Dates: start: 20050301, end: 20050906
  5. SANDOSTATIN [Concomitant]
  6. LANZOR [Concomitant]
  7. GEANGIN [Concomitant]

REACTIONS (7)
  - INCORRECT DOSE ADMINISTERED [None]
  - PYELONEPHRITIS [None]
  - PYELONEPHRITIS ACUTE [None]
  - PYELONEPHRITIS CHRONIC [None]
  - RENAL DISORDER [None]
  - RENAL FAILURE [None]
  - RENAL TUBULAR DISORDER [None]
